FAERS Safety Report 7578279-7 (Version None)
Quarter: 2011Q2

REPORT INFORMATION
  Report Type: 
  Country: None (occurrence: None)
  Receive Date: 20110628
  Receipt Date: 20110620
  Transmission Date: 20111010
  Serious: Yes (Other)
  Sender: FDA-Public Use
  Company Number: US-US-EMD SERONO, INC.-7066589

PATIENT
  Sex: Female

DRUGS (6)
  1. REBIF [Suspect]
     Indication: MULTIPLE SCLEROSIS
     Route: 058
     Dates: start: 20100901
  2. ZIAC [Concomitant]
     Indication: HYPERTENSION
     Dates: start: 20060101
  3. PRISTIQ [Concomitant]
     Indication: DEPRESSION
  4. LASIX [Concomitant]
     Dates: start: 20110501
  5. ZANAFLEX [Concomitant]
     Indication: MULTIPLE SCLEROSIS
  6. LASIX [Concomitant]
     Indication: FLUID RETENTION
     Dates: start: 20060101, end: 20110501

REACTIONS (3)
  - INFECTION [None]
  - RENAL DISORDER [None]
  - MULTIPLE SCLEROSIS RELAPSE [None]
